FAERS Safety Report 20746986 (Version 2)
Quarter: 2022Q2

REPORT INFORMATION
  Report Type: Spontaneous
  Country: CA (occurrence: CA)
  Receive Date: 20220425
  Receipt Date: 20220524
  Transmission Date: 20220721
  Serious: Yes (Death, Other)
  Sender: FDA-Public Use
  Company Number: CA-PFIZER INC-2021547503

PATIENT
  Age: 62 Year
  Sex: Female
  Weight: 68 kg

DRUGS (12)
  1. RUXIENCE [Suspect]
     Active Substance: RITUXIMAB-PVVR
     Indication: Granulomatosis with polyangiitis
     Dosage: 650 MG, WEEKLY (FOR 4 WEEKS)
     Route: 042
     Dates: start: 20210423
  2. RUXIENCE [Suspect]
     Active Substance: RITUXIMAB-PVVR
     Indication: Microscopic polyangiitis
     Dosage: 650 MG, WEEKLY (FOR 4 WEEKS)
     Route: 042
     Dates: start: 20210507
  3. RUXIENCE [Suspect]
     Active Substance: RITUXIMAB-PVVR
     Dosage: 650 MG, WEEKLY (FOR 4 WEEKS)
     Route: 042
     Dates: start: 20210514
  4. RUXIENCE [Suspect]
     Active Substance: RITUXIMAB-PVVR
     Dosage: 650 MG, WEEKLY (FOR 4 WEEKS)
     Route: 042
     Dates: start: 20210514
  5. RUXIENCE [Suspect]
     Active Substance: RITUXIMAB-PVVR
     Dosage: 1000 MG, WEEKLY, 2 DOSES 2 WEEKS APART AS MAINTENANCE
     Route: 042
     Dates: start: 20211115
  6. RUXIENCE [Suspect]
     Active Substance: RITUXIMAB-PVVR
     Dosage: 1000 MG, WEEKLY, 2 DOSES 2 WEEKS APART AS MAINTENANCE.
     Route: 042
     Dates: start: 20211201
  7. RUXIENCE [Suspect]
     Active Substance: RITUXIMAB-PVVR
     Dosage: 1000 MG, WEEKLY, 2 DOSES 2 WEEKS APART AS MAINTENANCE.
     Route: 042
     Dates: start: 20211214
  8. ACETAMINOPHEN [Concomitant]
     Active Substance: ACETAMINOPHEN
     Indication: Premedication
     Dosage: 650 MG
     Route: 048
  9. DIPHENHYDRAMINE [Concomitant]
     Active Substance: DIPHENHYDRAMINE
     Indication: Premedication
     Dosage: 50 MG
     Route: 048
  10. METHYLPREDNISOLONE [Concomitant]
     Active Substance: METHYLPREDNISOLONE
     Indication: Premedication
     Dosage: 100 MG
     Route: 042
  11. PREDNISONE [Concomitant]
     Active Substance: PREDNISONE
     Dosage: UNK
  12. PREDNISONE [Concomitant]
     Active Substance: PREDNISONE
     Dosage: 1 DF, 7.5 (UNITS AND FREQUENCY NOT PROVIDED)

REACTIONS (17)
  - Respiratory failure [Fatal]
  - Dyspnoea [Recovering/Resolving]
  - Oxygen saturation decreased [Recovering/Resolving]
  - Pneumonia [Unknown]
  - Pulmonary vasculitis [Unknown]
  - Depressed level of consciousness [Unknown]
  - Chronic obstructive pulmonary disease [Unknown]
  - Weight decreased [Unknown]
  - C-reactive protein increased [Unknown]
  - Antineutrophil cytoplasmic antibody positive [Unknown]
  - Malaise [Not Recovered/Not Resolved]
  - Anxiety [Not Recovered/Not Resolved]
  - Pleural effusion [Unknown]
  - COVID-19 [Unknown]
  - Atelectasis [Unknown]
  - Dialysis hypotension [Unknown]
  - Off label use [Unknown]

NARRATIVE: CASE EVENT DATE: 20210825
